FAERS Safety Report 4416058-X (Version None)
Quarter: 2004Q3

REPORT INFORMATION
  Report Type: 
  Country: None (occurrence: None)
  Receive Date: 20040804
  Receipt Date: 20040804
  Transmission Date: 20050211
  Serious: Yes (Hospitalization)
  Sender: FDA-Public Use
  Company Number: None

PATIENT
  Age: 52 Year
  Sex: Female

DRUGS (4)
  1. COUMADIN [Suspect]
     Indication: CEREBROVASCULAR ACCIDENT
     Dosage: 7.5 MG PER DAY
  2. COUMADIN [Suspect]
     Indication: HYPERCOAGULATION
     Dosage: 7.5 MG PER DAY
  3. AMBIEN [Suspect]
  4. PERCOCET [Suspect]

REACTIONS (6)
  - DRUG SCREEN POSITIVE [None]
  - HAEMATOCRIT DECREASED [None]
  - INTERNATIONAL NORMALISED RATIO INCREASED [None]
  - LETHARGY [None]
  - SEDATION [None]
  - SUICIDE ATTEMPT [None]
